FAERS Safety Report 17355891 (Version 3)
Quarter: 2020Q1

REPORT INFORMATION
  Report Type: Spontaneous
  Country: US (occurrence: US)
  Receive Date: 20200131
  Receipt Date: 20200323
  Transmission Date: 20200409
  Serious: No
  Sender: FDA-Public Use
  Company Number: US-SA-2020SA021341

PATIENT
  Age: 79 Year
  Sex: Male

DRUGS (2)
  1. DUPIXENT [Suspect]
     Active Substance: DUPILUMAB
     Indication: DERMATITIS ATOPIC
     Dosage: 300 MG/2ML, QOW
     Route: 058
     Dates: start: 20191227
  2. AMITRIPTYLIN [Concomitant]
     Active Substance: AMITRIPTYLINE

REACTIONS (3)
  - Drug ineffective [Unknown]
  - Dermatitis atopic [Not Recovered/Not Resolved]
  - Hypertension [Not Recovered/Not Resolved]

NARRATIVE: CASE EVENT DATE: 202001
